FAERS Safety Report 24867725 (Version 2)
Quarter: 2025Q1

REPORT INFORMATION
  Report Type: Report from Study
  Country: US (occurrence: US)
  Receive Date: 20250121
  Receipt Date: 20250131
  Transmission Date: 20250409
  Serious: Yes (Other)
  Sender: ABBVIE
  Company Number: US-ABBVIE-6092004

PATIENT
  Sex: Male

DRUGS (2)
  1. HUMIRA [Suspect]
     Active Substance: ADALIMUMAB
     Indication: Rheumatoid arthritis
     Route: 058
     Dates: start: 20100101
  2. HUMIRA [Suspect]
     Active Substance: ADALIMUMAB
     Indication: Polyarthritis

REACTIONS (9)
  - Spinal operation [Unknown]
  - Vertebral wedging [Unknown]
  - Spinal support [Unknown]
  - Intervertebral disc protrusion [Unknown]
  - Therapeutic product effect incomplete [Unknown]
  - Hypoaesthesia [Recovering/Resolving]
  - Surgical failure [Unknown]
  - Osteoporosis [Unknown]
  - Musculoskeletal disorder [Unknown]
